FAERS Safety Report 24107128 (Version 1)
Quarter: 2024Q3

REPORT INFORMATION
  Report Type: Spontaneous
  Country: US (occurrence: US)
  Receive Date: 20240718
  Receipt Date: 20240718
  Transmission Date: 20241016
  Serious: No
  Sender: AVERITAS
  Company Number: US-GRUNENTHAL-2023-299033

PATIENT
  Age: 69 Year
  Sex: Male

DRUGS (2)
  1. QUTENZA [Suspect]
     Active Substance: CAPSAICIN
     Indication: Diabetic neuropathy
     Dosage: UNK
     Route: 065
  2. QUTENZA [Suspect]
     Active Substance: CAPSAICIN
     Dosage: 4 DOSAGE FORM, ONCE
     Route: 061
     Dates: start: 20230210, end: 20230210

REACTIONS (5)
  - Thermal burn [Unknown]
  - Joint swelling [Unknown]
  - Peripheral swelling [Unknown]
  - Joint swelling [Unknown]
  - Skin discolouration [Unknown]
